FAERS Safety Report 12428697 (Version 1)
Quarter: 2016Q2

REPORT INFORMATION
  Report Type: Spontaneous
  Country: US (occurrence: None)
  Receive Date: 20160601
  Receipt Date: 20160601
  Transmission Date: 20160815
  Serious: Yes (Hospitalization)
  Sender: FDA-Public Use
  Company Number: None

PATIENT
  Age: 79 Year
  Sex: Female
  Weight: 36.29 kg

DRUGS (12)
  1. AMLODIPINE [Concomitant]
     Active Substance: AMLODIPINE BESYLATE
  2. METOP TART [Concomitant]
  3. APAP [Concomitant]
     Active Substance: ACETAMINOPHEN
  4. BENAZEPRIL [Concomitant]
     Active Substance: BENAZEPRIL HYDROCHLORIDE
  5. GABAPENTIN. [Concomitant]
     Active Substance: GABAPENTIN
  6. OMEPRAZOLE. [Concomitant]
     Active Substance: OMEPRAZOLE
  7. ATORVASTATIN [Concomitant]
     Active Substance: ATORVASTATIN
  8. DULOXETINE. [Concomitant]
     Active Substance: DULOXETINE
  9. WARFARIN [Concomitant]
     Active Substance: WARFARIN
  10. TRAMADOL. [Concomitant]
     Active Substance: TRAMADOL
  11. ORITAVANCIN, 1200 MG [Suspect]
     Active Substance: ORITAVANCIN
     Indication: CELLULITIS
     Dosage: 1200 MG X2 DOSES INTRAVENOUS DRIP
     Route: 041
     Dates: start: 20160108, end: 20160120
  12. DICLOXACILLIN [Concomitant]
     Active Substance: DICLOXACILLIN

REACTIONS (6)
  - Infusion related reaction [None]
  - Pain in extremity [None]
  - Chest pain [None]
  - Back pain [None]
  - Blood creatinine increased [None]
  - Hypertension [None]

NARRATIVE: CASE EVENT DATE: 20160120
